FAERS Safety Report 5066192-9 (Version None)
Quarter: 2006Q3

REPORT INFORMATION
  Report Type: 
  Country: None (occurrence: None)
  Receive Date: 20060703
  Receipt Date: 20060315
  Transmission Date: 20061208
  Serious: Yes (Other)
  Sender: FDA-Public Use
  Company Number: ENTC2006-0082

PATIENT
  Age: 70 Year
  Sex: Male

DRUGS (1)
  1. STALEVO 50 [Suspect]
     Indication: PARKINSON'S DISEASE
     Dosage: 300 MG, 3 IN 1 D, ORAL  : 150 MG, 3 IN 1 D, ORAL
     Route: 048
     Dates: start: 20030101

REACTIONS (3)
  - ABDOMINAL DISCOMFORT [None]
  - DIZZINESS [None]
  - PAIN [None]
